FAERS Safety Report 21212570 (Version 6)
Quarter: 2023Q2

REPORT INFORMATION
  Report Type: Report from Study
  Country: CL (occurrence: CL)
  Receive Date: 20220815
  Receipt Date: 20230506
  Transmission Date: 20230722
  Serious: Yes (Other)
  Sender: FDA-Public Use
  Company Number: CL-NOVARTISPH-NVSC2022CL183898

PATIENT
  Age: 60 Year
  Sex: Male
  Weight: 70 kg

DRUGS (5)
  1. COSENTYX [Suspect]
     Active Substance: SECUKINUMAB
     Indication: Psoriatic arthropathy
     Dosage: 300 MG, QMO
     Route: 058
     Dates: start: 20210301
  2. COSENTYX [Suspect]
     Active Substance: SECUKINUMAB
     Dosage: 300 MG
     Route: 065
     Dates: start: 20220805
  3. COSENTYX [Suspect]
     Active Substance: SECUKINUMAB
     Dosage: 300 MG
     Route: 065
     Dates: start: 20221101
  4. COSENTYX [Suspect]
     Active Substance: SECUKINUMAB
     Dosage: 300 MG
     Route: 065
     Dates: start: 20230305
  5. COSENTYX [Suspect]
     Active Substance: SECUKINUMAB
     Dosage: 300 MG
     Route: 065
     Dates: start: 20230423

REACTIONS (17)
  - Gastric ulcer [Unknown]
  - Abdominal pain upper [Unknown]
  - Discomfort [Unknown]
  - Psoriatic arthropathy [Recovering/Resolving]
  - Arthropathy [Unknown]
  - Joint stiffness [Unknown]
  - Ear pain [Unknown]
  - Oropharyngeal discomfort [Unknown]
  - Dysphonia [Unknown]
  - Pain [Recovering/Resolving]
  - Urticaria [Recovering/Resolving]
  - Gait inability [Unknown]
  - Fear [Unknown]
  - Nasopharyngitis [Unknown]
  - Psoriasis [Unknown]
  - Cough [Unknown]
  - Product supply issue [Unknown]

NARRATIVE: CASE EVENT DATE: 20230317
